FAERS Safety Report 25005518 (Version 1)
Quarter: 2025Q1

REPORT INFORMATION
  Report Type: Spontaneous
  Country: IT (occurrence: IT)
  Receive Date: 20250224
  Receipt Date: 20250224
  Transmission Date: 20250409
  Serious: Yes (Other)
  Sender: MYLAN
  Company Number: None

PATIENT
  Age: 68 Year
  Sex: Female

DRUGS (16)
  1. OXALIPLATIN [Suspect]
     Active Substance: OXALIPLATIN
     Indication: Colon neoplasm
     Dosage: 240 MILLIGRAM, Q3W
     Dates: start: 20210920, end: 20211011
  2. OXALIPLATIN [Suspect]
     Active Substance: OXALIPLATIN
     Dosage: 240 MILLIGRAM, Q3W
     Route: 042
     Dates: start: 20210920, end: 20211011
  3. OXALIPLATIN [Suspect]
     Active Substance: OXALIPLATIN
     Dosage: 240 MILLIGRAM, Q3W
     Route: 042
     Dates: start: 20210920, end: 20211011
  4. OXALIPLATIN [Suspect]
     Active Substance: OXALIPLATIN
     Dosage: 240 MILLIGRAM, Q3W
     Dates: start: 20210920, end: 20211011
  5. CAPECITABINE [Concomitant]
     Active Substance: CAPECITABINE
     Indication: Colon neoplasm
     Dosage: 3500 MILLIGRAM, QD (3500 MG DAILY FOR 14 DAYS (1 CYCLE EVERY 3 WEEKS)  )
     Dates: start: 20210913, end: 20211011
  6. CAPECITABINE [Concomitant]
     Active Substance: CAPECITABINE
     Dosage: 3500 MILLIGRAM, QD (3500 MG DAILY FOR 14 DAYS (1 CYCLE EVERY 3 WEEKS)  )
     Route: 048
     Dates: start: 20210913, end: 20211011
  7. CAPECITABINE [Concomitant]
     Active Substance: CAPECITABINE
     Dosage: 3500 MILLIGRAM, QD (3500 MG DAILY FOR 14 DAYS (1 CYCLE EVERY 3 WEEKS)  )
     Route: 048
     Dates: start: 20210913, end: 20211011
  8. CAPECITABINE [Concomitant]
     Active Substance: CAPECITABINE
     Dosage: 3500 MILLIGRAM, QD (3500 MG DAILY FOR 14 DAYS (1 CYCLE EVERY 3 WEEKS)  )
     Dates: start: 20210913, end: 20211011
  9. INSULIN NOS [Concomitant]
     Active Substance: INSULIN NOS
     Indication: Type 1 diabetes mellitus
  10. INSULIN NOS [Concomitant]
     Active Substance: INSULIN NOS
     Route: 065
  11. INSULIN NOS [Concomitant]
     Active Substance: INSULIN NOS
     Route: 065
  12. INSULIN NOS [Concomitant]
     Active Substance: INSULIN NOS
  13. LEVOTHYROXINE SODIUM [Concomitant]
     Active Substance: LEVOTHYROXINE SODIUM
     Indication: Post procedural hypothyroidism
  14. LEVOTHYROXINE SODIUM [Concomitant]
     Active Substance: LEVOTHYROXINE SODIUM
     Route: 065
  15. LEVOTHYROXINE SODIUM [Concomitant]
     Active Substance: LEVOTHYROXINE SODIUM
     Route: 065
  16. LEVOTHYROXINE SODIUM [Concomitant]
     Active Substance: LEVOTHYROXINE SODIUM

REACTIONS (5)
  - Vision blurred [Recovered/Resolved]
  - Muscle spasms [Recovered/Resolved]
  - Paraesthesia [Recovered/Resolved]
  - Infusion related reaction [Recovered/Resolved]
  - Flushing [Recovered/Resolved]

NARRATIVE: CASE EVENT DATE: 20211011
